FAERS Safety Report 18799640 (Version 1)
Quarter: 2021Q1

REPORT INFORMATION
  Report Type: Spontaneous
  Country: RU (occurrence: RU)
  Receive Date: 20210128
  Receipt Date: 20210128
  Transmission Date: 20210419
  Serious: Yes (Hospitalization)
  Sender: FDA-Public Use
  Company Number: RU-STRIDES ARCOLAB LIMITED-2021SP001134

PATIENT
  Age: 40 Year
  Sex: Female

DRUGS (3)
  1. ETRAVIRINE [Suspect]
     Active Substance: ETRAVIRINE
     Indication: HIV INFECTION
     Dosage: UNK, HIGHLY ACTIVE ANTIRETROVIRAL THERAPY (HAART)
     Route: 065
  2. ABACAVIR. [Suspect]
     Active Substance: ABACAVIR
     Indication: HIV INFECTION
     Dosage: UNK, HIGHLY ACTIVE ANTIRETROVIRAL THERAPY (HAART)
     Route: 065
  3. RITONAVIR. [Suspect]
     Active Substance: RITONAVIR
     Indication: HIV INFECTION
     Dosage: UNK, HIGHLY ACTIVE ANTIRETROVIRAL THERAPY (HAART)
     Route: 065

REACTIONS (1)
  - Arteriosclerosis [Unknown]
